FAERS Safety Report 19077932 (Version 1)
Quarter: 2021Q1

REPORT INFORMATION
  Report Type: Spontaneous
  Country: GB (occurrence: GB)
  Receive Date: 20210331
  Receipt Date: 20210331
  Transmission Date: 20210420
  Serious: Yes (Other)
  Sender: FDA-Public Use
  Company Number: GB-ACCORD-221405

PATIENT
  Age: 35 Year
  Sex: Male
  Weight: 73.93 kg

DRUGS (1)
  1. FINASTERIDE. [Suspect]
     Active Substance: FINASTERIDE
     Indication: HAIR GROWTH ABNORMAL
     Dosage: 1MG PER DAY
     Route: 048
     Dates: start: 20200201, end: 20210316

REACTIONS (4)
  - Anger [Unknown]
  - Disturbance in attention [Unknown]
  - Emotional poverty [Unknown]
  - Depressed mood [Not Recovered/Not Resolved]

NARRATIVE: CASE EVENT DATE: 20201109
